FAERS Safety Report 4849425-0 (Version None)
Quarter: 2005Q4

REPORT INFORMATION
  Report Type: 
  Country: None (occurrence: None)
  Receive Date: 20051207
  Receipt Date: 20051124
  Transmission Date: 20060501
  Serious: Yes (Life-Threatening)
  Sender: FDA-Public Use
  Company Number: 2005160424

PATIENT
  Age: 79 Year
  Sex: Female
  Weight: 50 kg

DRUGS (8)
  1. CELEBREX [Suspect]
     Indication: OSTEOARTHRITIS
     Dosage: 2 DOSE FORMS (2 IN 1 D), ORAL
     Route: 048
  2. FOSAMAX [Suspect]
     Indication: ARTHROPATHY
     Dosage: 1 DOSE FORM (EVERYDAY), ORAL
     Route: 048
  3. MADOPAR (BENSERAZIDE HYDROCHLORIDE, LEVODOPA) [Suspect]
     Indication: ILL-DEFINED DISORDER
     Dosage: 100 MG/25MG, 3 DOSE FORM (3 IN 1 D), ORAL
     Route: 048
  4. ASPIRIN [Suspect]
     Indication: ILL-DEFINED DISORDER
     Dosage: 1 DOSE FORM (INTERVAL: EVERY DAY), ORAL
     Route: 048
  5. FUROSEMIDE [Suspect]
     Indication: ILL-DEFINED DISORDER
     Dosage: 1 DOSE FORM (40 MG, INTERVAL: EVERY DAY), ORAL
     Route: 048
  6. ACETAMINOPHEN W/ PROPOXYPHENE HCL [Suspect]
  7. LUBENTYL (PARAFFIN, L IQUID) [Concomitant]
  8. ALL OTHER THERAPEUTIC PRODUCTS [Concomitant]

REACTIONS (5)
  - DYSPHAGIA [None]
  - GENERAL PHYSICAL HEALTH DETERIORATION [None]
  - OSTEONECROSIS [None]
  - PALATAL DISORDER [None]
  - ULCER [None]
